FAERS Safety Report 20686543 (Version 1)
Quarter: 2022Q2

REPORT INFORMATION
  Report Type: Spontaneous
  Country: US (occurrence: US)
  Receive Date: 20220407
  Receipt Date: 20220407
  Transmission Date: 20220721
  Serious: No
  Sender: FDA-Public Use
  Company Number: US-SA-2022SA115170

PATIENT
  Age: 54 Year
  Sex: Female

DRUGS (15)
  1. FABRAZYME [Suspect]
     Active Substance: AGALSIDASE BETA
     Indication: Fabry^s disease
     Dosage: 85 MG, QOW
     Route: 042
     Dates: start: 20190315
  2. COVID-19 VACCINE NOS [Suspect]
     Active Substance: COVID-19 VACCINE NOS
     Indication: COVID-19 immunisation
     Dosage: UNK
     Dates: start: 202108
  3. CARBAMAZEPINE [Concomitant]
     Active Substance: CARBAMAZEPINE
  4. CHLORPHENIRAMINE MALEATE [Concomitant]
     Active Substance: CHLORPHENIRAMINE MALEATE
  5. ACETAMINOPHEN [Concomitant]
     Active Substance: ACETAMINOPHEN
  6. SODIUM CHLORIDE [Concomitant]
     Active Substance: SODIUM CHLORIDE
  7. DIPHENHYDRAMINE HYDROCHLORIDE [Concomitant]
     Active Substance: DIPHENHYDRAMINE HYDROCHLORIDE
  8. STERILE WATER [Concomitant]
     Active Substance: WATER
  9. EPINEPHRINE [Concomitant]
     Active Substance: EPINEPHRINE
  10. SOLU-MEDROL [Concomitant]
     Active Substance: METHYLPREDNISOLONE SODIUM SUCCINATE
  11. VITAMIN D3 [Concomitant]
     Active Substance: CHOLECALCIFEROL
  12. DICYCLOMINE [Concomitant]
     Active Substance: DICYCLOMINE HYDROCHLORIDE
  13. FLUTICASONE [Concomitant]
     Active Substance: FLUTICASONE
  14. TRIAMTERENE;TRICHLORMETHIAZIDE [Concomitant]
  15. REFRESH OPTIVE [Concomitant]
     Active Substance: CARBOXYMETHYLCELLULOSE SODIUM\GLYCERIN

REACTIONS (3)
  - Hypertension [Unknown]
  - Dyspnoea [Unknown]
  - Blood pressure increased [Unknown]
